FAERS Safety Report 10482693 (Version 2)
Quarter: 2014Q4

REPORT INFORMATION
  Report Type: Report from Study
  Country: BR (occurrence: BR)
  Receive Date: 20140929
  Receipt Date: 20141224
  Transmission Date: 20150528
  Serious: Yes (Death, Hospitalization, Other)
  Sender: FDA-Public Use
  Company Number: PHHY2014BR127156

PATIENT
  Sex: Male
  Weight: 56 kg

DRUGS (1)
  1. EXELON PATCH [Suspect]
     Active Substance: RIVASTIGMINE
     Indication: PROPHYLAXIS
     Dosage: 1 DF, QD (ONE ADHESIVE)
     Route: 062
     Dates: start: 2007

REACTIONS (10)
  - Pulmonary oedema [Unknown]
  - Delirium [Unknown]
  - Product use issue [Unknown]
  - Dementia Alzheimer^s type [Not Recovered/Not Resolved]
  - Dyspnoea [Unknown]
  - Cardio-respiratory arrest [Fatal]
  - Aggression [Recovering/Resolving]
  - Lung neoplasm malignant [Fatal]
  - Blood pressure decreased [Unknown]
  - Memory impairment [Unknown]
